FAERS Safety Report 9976434 (Version 1)
Quarter: 2014Q1

REPORT INFORMATION
  Report Type: Report from Study
  Country: US (occurrence: US)
  Receive Date: 20140306
  Receipt Date: 20140306
  Transmission Date: 20141002
  Serious: No
  Sender: FDA-Public Use
  Company Number: US-ABBVIE-13P-163-1166408-00

PATIENT
  Age: 54 Year
  Sex: Male
  Weight: 59.93 kg

DRUGS (6)
  1. HUMIRA [Suspect]
     Indication: CROHN^S DISEASE
     Dosage: ONE DOSE
     Dates: start: 20131017, end: 20131017
  2. HUMIRA [Suspect]
     Dosage: ONE DOSE
     Dates: start: 20131031, end: 20131031
  3. HUMIRA [Suspect]
     Dosage: ONE DOSE
     Dates: start: 20131105, end: 20131105
  4. VITAMIN D [Concomitant]
     Indication: VITAMIN SUPPLEMENTATION
  5. IRON [Concomitant]
     Indication: MINERAL SUPPLEMENTATION
  6. VICODIN [Concomitant]
     Indication: ARTHRALGIA

REACTIONS (2)
  - Inappropriate schedule of drug administration [Not Recovered/Not Resolved]
  - Incorrect dose administered [Not Recovered/Not Resolved]
